FAERS Safety Report 4329872-6 (Version None)
Quarter: 2004Q1

REPORT INFORMATION
  Report Type: 
  Country: None (occurrence: None)
  Receive Date: 20040329
  Receipt Date: 20040318
  Transmission Date: 20041129
  Serious: Yes (Hospitalization)
  Sender: FDA-Public Use
  Company Number: 2004204693BR

PATIENT
  Age: 68 Year
  Sex: Male

DRUGS (5)
  1. ALDACTONE [Suspect]
     Indication: CARDIAC DISORDER
     Dosage: 100 MG, QD, ORAL
     Route: 048
     Dates: start: 20020101, end: 20040301
  2. LANITOP (METILDIGOXIN) [Concomitant]
  3. FUROSEMIDE [Concomitant]
  4. CAPTOPRIL [Concomitant]
  5. MONOCORD [Concomitant]

REACTIONS (2)
  - ABDOMINAL PAIN [None]
  - PNEUMONIA [None]
